FAERS Safety Report 10264548 (Version 1)
Quarter: 2014Q2

REPORT INFORMATION
  Report Type: Spontaneous
  Country: US (occurrence: US)
  Receive Date: 20140627
  Receipt Date: 20140627
  Transmission Date: 20141212
  Serious: No
  Sender: FDA-Public Use
  Company Number: US-BRACCO-010639

PATIENT
  Age: 66 Year
  Sex: Female

DRUGS (1)
  1. MULTIHANCE [Suspect]
     Indication: ANGIOGRAM
     Route: 042
     Dates: start: 20140226, end: 20140226

REACTIONS (1)
  - Throat irritation [Recovered/Resolved]
